FAERS Safety Report 9683992 (Version 2)
Quarter: 2013Q4

REPORT INFORMATION
  Report Type: Spontaneous
  Country: AT (occurrence: AT)
  Receive Date: 20131112
  Receipt Date: 20131203
  Transmission Date: 20140711
  Serious: Yes (Death, Hospitalization, Other)
  Sender: FDA-Public Use
  Company Number: AT-UCBSA-102704

PATIENT
  Age: 72 Year
  Sex: Female

DRUGS (5)
  1. LACOSAMIDE [Suspect]
     Indication: GRAND MAL CONVULSION
     Route: 042
     Dates: start: 20130109, end: 201301
  2. CARBAMAZEPINE [Concomitant]
     Dosage: UNKNOWN
  3. PHENYTOIN [Concomitant]
     Dosage: UNKNOWN
  4. CLOBAZAM [Concomitant]
     Dosage: UNKNOWN
  5. PROPOFOL [Concomitant]
     Dates: start: 20130118, end: 20130124

REACTIONS (6)
  - Cardiopulmonary failure [Fatal]
  - Cardiac disorder [Fatal]
  - Disorientation [Recovered/Resolved]
  - Aphasia [Recovered/Resolved]
  - Status epilepticus [Recovered/Resolved]
  - Infection [Unknown]
